FAERS Safety Report 9381210 (Version 1)
Quarter: 2013Q3

REPORT INFORMATION
  Report Type: Spontaneous
  Country: JP (occurrence: JP)
  Receive Date: 20130703
  Receipt Date: 20130703
  Transmission Date: 20140515
  Serious: Yes (Hospitalization)
  Sender: FDA-Public Use
  Company Number: JP-ROCHE-1239999

PATIENT
  Age: 64 Year
  Sex: Female
  Weight: 65 kg

DRUGS (7)
  1. AVASTIN [Suspect]
     Indication: RECTAL CANCER METASTATIC
     Route: 041
     Dates: start: 20130416, end: 20130528
  2. XELODA [Suspect]
     Indication: RECTAL CANCER METASTATIC
     Dosage: 14 TIMES/2 WEEKS
     Route: 048
     Dates: start: 20130416, end: 20130528
  3. ELPLAT [Concomitant]
     Indication: RECTAL CANCER METASTATIC
     Route: 041
     Dates: start: 20130416, end: 20130528
  4. FAMOTIDINE [Concomitant]
     Indication: DUODENAL ULCER
     Route: 048
     Dates: start: 20130228
  5. PYDOXAL [Concomitant]
     Indication: PROPHYLAXIS
     Route: 048
     Dates: start: 20130416, end: 20130528
  6. GRANISETRON [Concomitant]
     Indication: PROPHYLAXIS OF NAUSEA AND VOMITING
     Dosage: DOSAGE IS UNCERTAIN.
     Route: 065
     Dates: start: 20130416, end: 20130528
  7. DEXART [Concomitant]
     Indication: PROPHYLAXIS OF NAUSEA AND VOMITING
     Dosage: DOSAGE IS UNCERTAIN.
     Route: 065
     Dates: start: 20130416, end: 20130528

REACTIONS (2)
  - Small intestinal perforation [Not Recovered/Not Resolved]
  - Stoma site abscess [Unknown]
